FAERS Safety Report 24930598 (Version 1)
Quarter: 2025Q1

REPORT INFORMATION
  Report Type: Report from Study
  Country: US (occurrence: US)
  Receive Date: 20250205
  Receipt Date: 20250205
  Transmission Date: 20250409
  Serious: Yes (Other)
  Sender: AURINIA PHARMACEUTICALS
  Company Number: US-OTSUKA PHARMACEUTICAL NETHERLANDS B.V.-AUR-007625

PATIENT
  Age: 82 Year
  Sex: Female

DRUGS (1)
  1. LUPKYNIS [Suspect]
     Active Substance: VOCLOSPORIN
     Indication: Lupus nephritis
     Route: 048

REACTIONS (4)
  - Glomerular filtration rate decreased [Unknown]
  - Weight decreased [Unknown]
  - Gingival bleeding [Unknown]
  - White coat hypertension [Unknown]

NARRATIVE: CASE EVENT DATE: 20240828
